FAERS Safety Report 9957945 (Version 1)
Quarter: 2014Q1

REPORT INFORMATION
  Report Type: Report from Study
  Country: US (occurrence: US)
  Receive Date: 20140304
  Receipt Date: 20140304
  Transmission Date: 20141002
  Serious: No
  Sender: FDA-Public Use
  Company Number: US-ABBVIE-13P-163-1093258-00

PATIENT
  Age: 30 Year
  Sex: Female

DRUGS (4)
  1. HUMIRA [Suspect]
     Indication: PSORIATIC ARTHROPATHY
     Dates: start: 201303
  2. PERCOCET [Concomitant]
     Indication: BREAKTHROUGH PAIN
  3. XANAX [Concomitant]
     Indication: ANXIETY
  4. AMBIEN [Concomitant]
     Indication: INSOMNIA

REACTIONS (1)
  - Colitis [Recovering/Resolving]
